FAERS Safety Report 25960793 (Version 1)
Quarter: 2025Q4

REPORT INFORMATION
  Report Type: Spontaneous
  Country: US (occurrence: US)
  Receive Date: 20251027
  Receipt Date: 20251027
  Transmission Date: 20260117
  Serious: No
  Sender: DR REDDYS
  Company Number: None

PATIENT
  Sex: Male

DRUGS (1)
  1. VALPROIC ACID [Suspect]
     Active Substance: VALPROIC ACID
     Indication: Jeavons syndrome

REACTIONS (1)
  - Weight increased [Unknown]
